FAERS Safety Report 9783196 (Version 1)
Quarter: 2013Q4

REPORT INFORMATION
  Report Type: Spontaneous
  Country: IT (occurrence: None)
  Receive Date: 20131223
  Receipt Date: 20131223
  Transmission Date: 20140711
  Serious: Yes (Hospitalization)
  Sender: FDA-Public Use
  Company Number: 2013AP010645

PATIENT
  Age: 76 Year
  Sex: Male

DRUGS (2)
  1. LEVOFLOXACIN (LEVOFLOXACIN) [Suspect]
  2. METFORMIN (METFORMIN) [Suspect]
     Indication: TYPE 2 DIABETES MELLITUS

REACTIONS (7)
  - Toxicity to various agents [None]
  - Dyspnoea [None]
  - Metabolic acidosis [None]
  - Hypoglycaemia [None]
  - Tubulointerstitial nephritis [None]
  - Blood pressure systolic increased [None]
  - Drug level above therapeutic [None]
